FAERS Safety Report 13710025 (Version 1)
Quarter: 2017Q3

REPORT INFORMATION
  Report Type: Spontaneous
  Country: GB (occurrence: GB)
  Receive Date: 20170703
  Receipt Date: 20170703
  Transmission Date: 20171127
  Serious: Yes (Other)
  Sender: FDA-Public Use
  Company Number: GB-ALIMERA SCIENCES INC.-GB-IL-2017-003498

PATIENT

DRUGS (4)
  1. ILUVIEN [Suspect]
     Active Substance: FLUOCINOLONE ACETONIDE
     Indication: DIABETIC RETINAL OEDEMA
     Dosage: 0.25 ?G, QD - LEFT EYE
     Route: 031
     Dates: start: 20140630
  2. AZARGA EYE DROPS [Concomitant]
     Indication: GLAUCOMA
  3. AZARGA EYE DROPS [Concomitant]
     Indication: GLAUCOMA
     Dosage: BD- LEFT EYE
  4. LUMIGAN [Concomitant]
     Active Substance: BIMATOPROST
     Indication: GLAUCOMA
     Dosage: NOCTE - LEFT EYE

REACTIONS (3)
  - Blindness [Not Recovered/Not Resolved]
  - Intraocular pressure increased [Unknown]
  - Optic nerve cupping [Unknown]

NARRATIVE: CASE EVENT DATE: 2016
